FAERS Safety Report 8759217 (Version 1)
Quarter: 2012Q4

REPORT INFORMATION
  Report Type: 
  Country: US (occurrence: US)
  Receive Date: 20120829
  Receipt Date: 20120829
  Transmission Date: 20130627
  Serious: Yes (Other)
  Sender: FDA-Public Use
  Company Number: US-WATSON-2012-14676

PATIENT
  Age: 36 Year
  Sex: Female

DRUGS (2)
  1. PAROXETINE HYDROCHLORIDE [Suspect]
     Indication: ANXIETY
     Dosage: 10 mg, daily
     Route: 065
  2. CLARITHROMYCIN EXTENDED RELEASE (WATSON LABORATORIES) [Suspect]
     Indication: UPPER RESPIRATORY TRACT INFECTION
     Dosage: 500 mg, bid
     Route: 065

REACTIONS (3)
  - Serotonin syndrome [Recovered/Resolved]
  - Drug interaction [Recovered/Resolved]
  - Upper respiratory tract infection [None]
